FAERS Safety Report 7576893-6 (Version None)
Quarter: 2011Q2

REPORT INFORMATION
  Report Type: 
  Country: None (occurrence: None)
  Receive Date: 20110628
  Receipt Date: 20110128
  Transmission Date: 20111010
  Serious: Yes (Hospitalization, Other)
  Sender: FDA-Public Use
  Company Number: US-BAYER-201040526NA

PATIENT
  Age: 16 Year
  Sex: Female
  Weight: 126.98 kg

DRUGS (20)
  1. YAZ [Suspect]
     Indication: MENSTRUAL CYCLE MANAGEMENT
  2. YASMIN [Suspect]
     Indication: PREMENSTRUAL SYNDROME
  3. YASMIN [Suspect]
     Indication: MENSTRUAL CYCLE MANAGEMENT
  4. TEGRETOL [Concomitant]
  5. YAZ [Suspect]
     Indication: ACNE
     Dosage: UNK
     Dates: start: 20010101, end: 20040101
  6. YAZ [Suspect]
     Indication: PREMENSTRUAL SYNDROME
  7. DROSPIRENONE AND ETHINYL ESTRADIOL [Suspect]
     Indication: ACNE
     Dosage: UNK
     Dates: start: 20010101, end: 20040101
  8. NAPROXEN [Concomitant]
     Dosage: UNK
  9. DROSPIRENONE AND ETHINYL ESTRADIOL [Suspect]
     Indication: MENSTRUAL CYCLE MANAGEMENT
  10. ADVIL LIQUI-GELS [Concomitant]
     Dosage: UNK
  11. PHENERGAN HCL [Concomitant]
  12. DROSPIRENONE AND ETHINYL ESTRADIOL [Suspect]
     Indication: PREMENSTRUAL SYNDROME
  13. MOTRIN [Concomitant]
  14. ULTRAM [Concomitant]
  15. YASMIN [Suspect]
     Indication: ACNE
     Dosage: UNK
     Dates: start: 20010101, end: 20040101
  16. MIRCETTE [Concomitant]
  17. ALESSE [Concomitant]
     Dosage: UNK
     Dates: start: 20020930
  18. TRIAMTERENE [Concomitant]
     Dosage: UNK
     Dates: start: 20050101
  19. DARVOCET [Concomitant]
  20. ERYTHROMYCIN [Concomitant]
     Dosage: UNK

REACTIONS (6)
  - HEPATOMEGALY [None]
  - MENTAL DISORDER [None]
  - CHOLELITHIASIS [None]
  - PANCREATITIS [None]
  - CHOLECYSTECTOMY [None]
  - PAIN [None]
